FAERS Safety Report 8532281-7 (Version None)
Quarter: 2012Q3

REPORT INFORMATION
  Report Type: 
  Country: None (occurrence: None)
  Receive Date: 20120724
  Receipt Date: 20120718
  Transmission Date: 20120928
  Serious: Yes (Other)
  Sender: FDA-Public Use
  Company Number: US-AMGEN-USASP2012044692

PATIENT
  Age: 58 Year
  Sex: Male

DRUGS (1)
  1. ENBREL [Suspect]
     Indication: PSORIASIS
     Dosage: 50 MG, QWK
     Dates: start: 20060310, end: 20080101

REACTIONS (5)
  - ABDOMINAL PAIN UPPER [None]
  - APHAGIA [None]
  - DYSPEPSIA [None]
  - CHRONIC MYELOID LEUKAEMIA [None]
  - NAUSEA [None]
